FAERS Safety Report 15828113 (Version 1)
Quarter: 2019Q1

REPORT INFORMATION
  Report Type: Spontaneous
  Country: US (occurrence: US)
  Receive Date: 20190115
  Receipt Date: 20190115
  Transmission Date: 20190417
  Serious: No
  Sender: FDA-Public Use
  Company Number: US-ALLERGAN-1824420US

PATIENT
  Age: 73 Year
  Sex: Female
  Weight: 54.43 kg

DRUGS (5)
  1. CARBIDOPA. [Concomitant]
     Active Substance: CARBIDOPA
     Indication: PARKINSON^S DISEASE
     Route: 048
  2. RESTASIS [Suspect]
     Active Substance: CYCLOSPORINE
     Dosage: 2 GTT, BID
     Route: 047
     Dates: start: 20180422
  3. RESTASIS [Suspect]
     Active Substance: CYCLOSPORINE
     Dosage: 2 GTT, BID
     Route: 047
     Dates: start: 20180422
  4. SYNTHROID [Concomitant]
     Active Substance: LEVOTHYROXINE SODIUM
     Indication: HYPOTHYROIDISM
     Dosage: UNK
     Route: 048
  5. RESTASIS [Suspect]
     Active Substance: CYCLOSPORINE
     Indication: DRY EYE
     Dosage: 2 GTT, BID
     Route: 047
     Dates: start: 201710, end: 201711

REACTIONS (4)
  - Product packaging quantity issue [Unknown]
  - Intentional product misuse [Unknown]
  - Product dose omission [Unknown]
  - Product container issue [Unknown]

NARRATIVE: CASE EVENT DATE: 2017
